FAERS Safety Report 9218252 (Version 1)
Quarter: 2013Q2

REPORT INFORMATION
  Report Type: Spontaneous
  Country: US (occurrence: US)
  Receive Date: 20130408
  Receipt Date: 20130408
  Transmission Date: 20140414
  Serious: No
  Sender: FDA-Public Use
  Company Number: US-009507513-1304USA000230

PATIENT
  Sex: 0

DRUGS (2)
  1. EMEND [Suspect]
     Dosage: 125 MG ON DAY 1
     Route: 048
  2. EMEND [Suspect]
     Dosage: 80 MG ON DAY 2 AND DAY 3
     Route: 048

REACTIONS (1)
  - Drug ineffective [Unknown]
